FAERS Safety Report 9159673 (Version 2)
Quarter: 2013Q4

REPORT INFORMATION
  Report Type: Spontaneous
  Country: GB (occurrence: None)
  Receive Date: 20130214
  Receipt Date: 20131016
  Transmission Date: 20140711
  Serious: Yes (Other)
  Sender: FDA-Public Use
  Company Number: AUR-APL-2013-01257

PATIENT
  Age: 65 Year
  Sex: Female
  Weight: 51 kg

DRUGS (6)
  1. SERTRALINE (SERTRALINE) (SERTRALINE) [Suspect]
     Indication: DEPRESSION
     Route: 048
     Dates: start: 20120405, end: 20121125
  2. AMLODIPINE (AMLODIPINE) [Concomitant]
  3. ATORVASTATIN (ATORVASTATIN) [Concomitant]
  4. CLOPIDOGREL (CLOPIDROGREL) [Concomitant]
  5. FUROSEMIDE (FUROSEMIDE) [Concomitant]
  6. PARACETAMOL (PARACETAMOL) [Concomitant]

REACTIONS (2)
  - Contusion [None]
  - Increased tendency to bruise [None]
